FAERS Safety Report 8841737 (Version 2)
Quarter: 2012Q4

REPORT INFORMATION
  Report Type: Spontaneous
  Country: US (occurrence: None)
  Receive Date: 20121011
  Receipt Date: 20121220
  Transmission Date: 20130627
  Serious: Yes (Death)
  Sender: FDA-Public Use
  Company Number: 2012-525

PATIENT
  Age: 51 None
  Sex: Male

DRUGS (4)
  1. PRIALT [Suspect]
     Indication: PAIN
     Dosage: once/hour
     Route: 037
     Dates: end: 20111228
  2. PRIALT [Suspect]
     Indication: BACK PAIN
     Dosage: once/hour
     Route: 037
     Dates: end: 20111228
  3. PRIALT [Suspect]
     Indication: PAIN
     Dates: start: 20111228, end: 20111229
  4. PRIALT [Suspect]
     Indication: BACK PAIN
     Dates: start: 20111228, end: 20111229

REACTIONS (1)
  - Death [None]
